FAERS Safety Report 18568948 (Version 9)
Quarter: 2023Q1

REPORT INFORMATION
  Report Type: Report from Study
  Country: DK (occurrence: None)
  Receive Date: 20201202
  Receipt Date: 20230208
  Transmission Date: 20230418
  Serious: Yes (Hospitalization)
  Sender: FDA-Public Use
  Company Number: DK-ROCHE-2722732

PATIENT
  Age: 53 Year
  Sex: Male
  Weight: 75 kg

DRUGS (20)
  1. INVESTIGATIONAL PRODUCT [Suspect]
     Active Substance: INVESTIGATIONAL PRODUCT
     Indication: Pleural mesothelioma malignant
     Dosage: START DATE OF MOST RECENT DOSE OF 50 ML STUDY DRUG PRIOR TO AE AND SAE: 23/NOV/2020  AT 1:33 PM.?END
     Route: 041
     Dates: start: 20201005
  2. ATEZOLIZUMAB [Suspect]
     Active Substance: ATEZOLIZUMAB
     Indication: Pleural mesothelioma malignant
     Dosage: START DATE OF MOST RECENT DOSE OF 270 ML STUDY DRUG PRIOR TO AE AND SAE: 16/NOV/2020 AT 11:25 AM.?EN
     Route: 041
     Dates: start: 20201005
  3. IBUPROFEN [Concomitant]
     Active Substance: IBUPROFEN
     Indication: Arthralgia
     Dates: start: 20201109, end: 20201123
  4. ACETAMINOPHEN [Concomitant]
     Active Substance: ACETAMINOPHEN
     Indication: Arthralgia
     Dates: start: 20201109, end: 20201123
  5. ACETAMINOPHEN [Concomitant]
     Active Substance: ACETAMINOPHEN
     Indication: Pyrexia
     Dates: start: 20201117
  6. ACETAMINOPHEN [Concomitant]
     Active Substance: ACETAMINOPHEN
     Indication: Myalgia
     Dates: start: 20201117
  7. ACETAMINOPHEN [Concomitant]
     Active Substance: ACETAMINOPHEN
     Indication: Arthralgia
  8. ACETAMINOPHEN [Concomitant]
     Active Substance: ACETAMINOPHEN
     Indication: Arthralgia
  9. CETIRIZINE HYDROCHLORIDE [Concomitant]
     Active Substance: CETIRIZINE HYDROCHLORIDE
     Route: 048
     Dates: start: 20201109, end: 20201109
  10. CETIRIZINE HYDROCHLORIDE [Concomitant]
     Active Substance: CETIRIZINE HYDROCHLORIDE
     Route: 048
     Dates: start: 20201123, end: 20201123
  11. CETIRIZINE HYDROCHLORIDE [Concomitant]
     Active Substance: CETIRIZINE HYDROCHLORIDE
     Route: 048
     Dates: start: 20201116, end: 20201116
  12. CETIRIZINE HYDROCHLORIDE [Concomitant]
     Active Substance: CETIRIZINE HYDROCHLORIDE
     Route: 048
     Dates: start: 20210111, end: 20210111
  13. CLEMASTINE FUMARATE [Concomitant]
     Active Substance: CLEMASTINE FUMARATE
     Route: 042
     Dates: start: 20201102, end: 20201102
  14. CLEMASTINE FUMARATE [Concomitant]
     Active Substance: CLEMASTINE FUMARATE
     Route: 042
     Dates: start: 20201026, end: 20201026
  15. SOLU-MEDROL [Concomitant]
     Active Substance: METHYLPREDNISOLONE SODIUM SUCCINATE
     Route: 042
     Dates: start: 20201026, end: 20201026
  16. PSYLLIUM [Concomitant]
     Active Substance: PLANTAGO SEED
     Indication: Constipation
     Dates: start: 20200930
  17. MAGNESIUM [Concomitant]
     Active Substance: MAGNESIUM
     Indication: Constipation
     Dates: start: 20200630
  18. INFLUENZA VIRUS VACCINE [Concomitant]
     Active Substance: INFLUENZA VIRUS VACCINE
     Indication: Influenza
     Dates: start: 20201117, end: 20201117
  19. PANTOPRAZOLE SODIUM [Concomitant]
     Active Substance: PANTOPRAZOLE SODIUM
     Indication: Prophylaxis
     Dates: start: 20201202
  20. ZOPICLONE [Concomitant]
     Active Substance: ZOPICLONE
     Indication: Insomnia
     Dates: start: 20201202

REACTIONS (1)
  - Mononeuropathy [Recovered/Resolved]

NARRATIVE: CASE EVENT DATE: 20201125
